FAERS Safety Report 15277435 (Version 1)
Quarter: 2018Q3

REPORT INFORMATION
  Report Type: Spontaneous
  Country: JP (occurrence: JP)
  Receive Date: 20180814
  Receipt Date: 20180814
  Transmission Date: 20181010
  Serious: Yes (Hospitalization, Other)
  Sender: FDA-Public Use
  Company Number: JP-APOTEX-2018AP018709

PATIENT

DRUGS (3)
  1. PAROXETINE HYDROCHLORIDE TABLET [Suspect]
     Active Substance: PAROXETINE HYDROCHLORIDE
     Indication: PRODUCT USED FOR UNKNOWN INDICATION
     Dosage: UNK
     Route: 048
  2. E KEPPRA [Concomitant]
     Active Substance: LEVETIRACETAM
     Indication: EPILEPSY
     Dosage: UNK
     Route: 048
  3. PAROXETINE HYDROCHLORIDE TABLET [Suspect]
     Active Substance: PAROXETINE HYDROCHLORIDE
     Dosage: 2 DF, UNK
     Route: 048

REACTIONS (6)
  - Malaise [Unknown]
  - Tremor [Unknown]
  - Somnolence [Unknown]
  - Malaise [Unknown]
  - Speech disorder [Unknown]
  - Loss of consciousness [Unknown]

NARRATIVE: CASE EVENT DATE: 2018
